FAERS Safety Report 17434720 (Version 1)
Quarter: 2020Q1

REPORT INFORMATION
  Report Type: Spontaneous
  Country: DE (occurrence: DE)
  Receive Date: 20200219
  Receipt Date: 20200219
  Transmission Date: 20200409
  Serious: Yes (Other)
  Sender: FDA-Public Use
  Company Number: DE-PFIZER INC-2020068605

PATIENT
  Age: 36 Year
  Sex: Female
  Weight: 62 kg

DRUGS (1)
  1. CYTOTEC [Suspect]
     Active Substance: MISOPROSTOL
     Dosage: 2 DF, DAILY
     Dates: start: 20190404, end: 20190404

REACTIONS (7)
  - Maternal exposure during pregnancy [Unknown]
  - Off label use [Unknown]
  - Abnormal labour [Unknown]
  - Cerebral haemorrhage [Unknown]
  - Uterine rupture [Unknown]
  - Disseminated intravascular coagulation [Unknown]
  - Product use issue [Unknown]

NARRATIVE: CASE EVENT DATE: 20190404
